FAERS Safety Report 9617464 (Version 3)
Quarter: 2014Q1

REPORT INFORMATION
  Report Type: Report from Study
  Country: DE (occurrence: DE)
  Receive Date: 20131011
  Receipt Date: 20140121
  Transmission Date: 20141002
  Serious: Yes (Death, Life-Threatening, Other)
  Sender: FDA-Public Use
  Company Number: DE-TEVA-431938GER

PATIENT
  Age: 61 Year
  Sex: Male
  Weight: 106 kg

DRUGS (5)
  1. COPAXONE [Suspect]
     Indication: MULTIPLE SCLEROSIS
     Dates: start: 20090721, end: 20131231
  2. VALSARTAN [Concomitant]
     Dates: end: 2013
  3. NOVAMINSULFON [Concomitant]
     Dates: end: 2013
  4. SIMVASTATIN [Concomitant]
     Dates: end: 2013
  5. BISOPROLOL [Concomitant]
     Dates: end: 2013

REACTIONS (3)
  - Malignant neoplasm of unknown primary site [Fatal]
  - Metastases to bone [Fatal]
  - Metastases to spine [Not Recovered/Not Resolved]
